FAERS Safety Report 9741425 (Version 2)
Quarter: 2014Q1

REPORT INFORMATION
  Report Type: Report from Study
  Country: CL (occurrence: CL)
  Receive Date: 20131209
  Receipt Date: 20140210
  Transmission Date: 20141002
  Serious: Yes (Other)
  Sender: FDA-Public Use
  Company Number: PHHY2013CL143060

PATIENT
  Age: 71 Year
  Sex: Female

DRUGS (6)
  1. ACLASTA [Suspect]
     Indication: OSTEOPOROSIS
     Dosage: ONCE A YEAR
     Route: 042
  2. ACLASTA [Suspect]
     Dosage: ONCE A YEAR
     Route: 042
  3. ACLASTA [Suspect]
     Dosage: ONCE A YEAR
     Route: 042
     Dates: start: 20130702
  4. CORDIAX D [Concomitant]
     Indication: BLOOD PRESSURE ABNORMAL
     Dosage: 12.5 MG / 40 MG
  5. OMEPRAZOLE [Concomitant]
     Indication: HIATUS HERNIA
     Dosage: UNK UKN, UNK
     Dates: start: 2002
  6. ELCAL D [Concomitant]
     Dosage: UNK UKN, UNK

REACTIONS (9)
  - Upper limb fracture [Recovered/Resolved with Sequelae]
  - Wrist fracture [Recovered/Resolved with Sequelae]
  - Loose tooth [Unknown]
  - Fall [Recovered/Resolved with Sequelae]
  - Feeling abnormal [Not Recovered/Not Resolved]
  - Impaired healing [Unknown]
  - Bone disorder [Unknown]
  - Dizziness [Not Recovered/Not Resolved]
  - Diarrhoea [Not Recovered/Not Resolved]
